FAERS Safety Report 19306346 (Version 1)
Quarter: 2021Q2

REPORT INFORMATION
  Report Type: Report from Study
  Country: DE (occurrence: DE)
  Receive Date: 20210525
  Receipt Date: 20210525
  Transmission Date: 20210717
  Serious: Yes (Hospitalization)
  Sender: FDA-Public Use
  Company Number: DE-BAUSCH-BL-2021-017377

PATIENT
  Age: 75 Year
  Sex: Female
  Weight: 66 kg

DRUGS (7)
  1. ASPIRIN. [Concomitant]
     Active Substance: ASPIRIN
     Indication: RENAL ARTERY STENT PLACEMENT
     Dosage: 100 MG, 1X/DAY:QD, DAILY
     Dates: start: 2008
  2. COLECALCIFEROL [Concomitant]
     Active Substance: CHOLECALCIFEROL
     Indication: VITAMIN D DEFICIENCY
     Dosage: 400 UNITS, 1X/DAY:QD, DAILY
     Dates: start: 2009
  3. ASTONIN H [Concomitant]
     Indication: ADRENAL INSUFFICIENCY
     Dosage: 0.05 MG, 1X/DAY:QD, DAILY
     Dates: start: 1972
  4. DHEA [Concomitant]
     Active Substance: PRASTERONE
     Indication: ADRENAL INSUFFICIENCY
     Dosage: 12.5 MG, 1X/DAY:QD, DAILY
     Dates: start: 2014
  5. HYDROCHLOROTHIAZID [Concomitant]
     Active Substance: HYDROCHLOROTHIAZIDE
     Indication: HYPERTENSION
     Dosage: 12.5 MG, 1X/DAY:QD, DAILY
     Dates: start: 2011
  6. HYDROCORTISONE COMPARATOR [Suspect]
     Active Substance: HYDROCORTISONE
     Dosage: 20 MG, 2X/DAY:BID
     Route: 065
     Dates: start: 20150403
  7. HYDROCORTISONE COMPARATOR [Suspect]
     Active Substance: HYDROCORTISONE
     Indication: ADRENAL INSUFFICIENCY
     Dosage: 20 MG, 2X/DAY:BID
     Route: 065
     Dates: start: 20140618, end: 20150331

REACTIONS (1)
  - Syncope [Recovered/Resolved]

NARRATIVE: CASE EVENT DATE: 20150401
